FAERS Safety Report 23474709 (Version 1)
Quarter: 2024Q1

REPORT INFORMATION
  Report Type: Report from Study
  Country: US (occurrence: US)
  Receive Date: 20240204
  Receipt Date: 20240204
  Transmission Date: 20240409
  Serious: Yes (Hospitalization)
  Sender: FDA-Public Use
  Company Number: US-EXELIXIS-CABO-23065462

PATIENT
  Age: 67 Year
  Sex: Male

DRUGS (17)
  1. CABOMETYX [Suspect]
     Active Substance: CABOZANTINIB S-MALATE
     Indication: Renal cell carcinoma
     Dosage: 20 MG, QD
     Dates: start: 20230531
  2. LOVENOX [Concomitant]
     Active Substance: ENOXAPARIN SODIUM
  3. ONDANSETRON [Concomitant]
     Active Substance: ONDANSETRON
  4. OXYCODONE [Concomitant]
     Active Substance: OXYCODONE\OXYCODONE HYDROCHLORIDE
  5. POLYETHYLENE GLYCOL [Concomitant]
     Active Substance: POLYETHYLENE GLYCOL
  6. PREGABALIN [Concomitant]
     Active Substance: PREGABALIN
  7. PROCHLORPERAZINE [Concomitant]
     Active Substance: PROCHLORPERAZINE
  8. SENNOSIDES [Concomitant]
     Active Substance: SENNOSIDES
  9. WARFARIN [Concomitant]
     Active Substance: WARFARIN
  10. CALCIUM CARBONATE [Concomitant]
     Active Substance: CALCIUM CARBONATE
  11. VITAMIN D3 [Concomitant]
     Active Substance: CHOLECALCIFEROL
  12. DULOXETINE [Concomitant]
     Active Substance: DULOXETINE
  13. FAMOTIDINE [Concomitant]
     Active Substance: FAMOTIDINE
  14. METHADONE [Concomitant]
     Active Substance: METHADONE HYDROCHLORIDE
  15. OLANZAPINE [Concomitant]
     Active Substance: OLANZAPINE
  16. MIRALAX [Concomitant]
     Active Substance: POLYETHYLENE GLYCOL 3350
  17. BENADRYL [Concomitant]
     Active Substance: DIPHENHYDRAMINE HYDROCHLORIDE

REACTIONS (14)
  - Thrombosis [Not Recovered/Not Resolved]
  - Blister [Recovered/Resolved]
  - Taste disorder [Recovering/Resolving]
  - Blood pressure increased [Recovering/Resolving]
  - Fatigue [Unknown]
  - Nausea [Recovered/Resolved]
  - Diarrhoea [Recovered/Resolved]
  - Vomiting [Not Recovered/Not Resolved]
  - Weight decreased [Not Recovered/Not Resolved]
  - Peripheral swelling [Recovering/Resolving]
  - COVID-19 [Not Recovered/Not Resolved]
  - International normalised ratio increased [Recovering/Resolving]
  - Neoplasm [Recovering/Resolving]
  - Oral pain [Not Recovered/Not Resolved]

NARRATIVE: CASE EVENT DATE: 20230823
